FAERS Safety Report 21655837 (Version 1)
Quarter: 2022Q4

REPORT INFORMATION
  Report Type: Spontaneous
  Country: PL (occurrence: PL)
  Receive Date: 20221129
  Receipt Date: 20221129
  Transmission Date: 20230113
  Serious: Yes (Hospitalization, Other)
  Sender: FDA-Public Use
  Company Number: None

PATIENT
  Age: 67 Year
  Sex: Female

DRUGS (5)
  1. SERTRALINE [Interacting]
     Active Substance: SERTRALINE HYDROCHLORIDE
     Indication: Depression
     Dosage: 100 MILLIGRAM, BID
  2. DORZOLAMIDE HYDROCHLORIDE\TIMOLOL MALEATE [Interacting]
     Active Substance: DORZOLAMIDE HYDROCHLORIDE\TIMOLOL MALEATE
     Indication: Glaucoma
     Dosage: ONE DROP INTO EACH EYE AT 8 AM AND AT 8 PM
  3. TIMOLOL [Interacting]
     Active Substance: TIMOLOL
     Indication: Glaucoma
     Dosage: UNK
  4. VENLAFAXINE [Interacting]
     Active Substance: VENLAFAXINE HYDROCHLORIDE
     Indication: Depression
     Dosage: 150 MILLIGRAM PER DAY
  5. BROMAZEPAM [Concomitant]
     Active Substance: BROMAZEPAM
     Indication: Depression
     Dosage: 3 MILLIGRAM PER DAY

REACTIONS (5)
  - Drug interaction [Unknown]
  - Sinoatrial block [Recovered/Resolved]
  - Nodal rhythm [Recovered/Resolved]
  - Drug clearance decreased [Unknown]
  - Bradycardia [Recovered/Resolved]
